FAERS Safety Report 6690300-7 (Version None)
Quarter: 2010Q2

REPORT INFORMATION
  Report Type: 
  Country: None (occurrence: None)
  Receive Date: 20100421
  Receipt Date: 20080909
  Transmission Date: 20101027
  Serious: Yes (Death, Hospitalization, Other)
  Sender: FDA-Public Use
  Company Number: RU-SANOFI-AVENTIS-2010SA022816

PATIENT
  Age: 50 Year
  Sex: Female

DRUGS (14)
  1. FLUDARABINE PHOSPHATE [Suspect]
     Indication: NON-HODGKIN'S LYMPHOMA
     Route: 048
     Dates: start: 20080507, end: 20080511
  2. FLUDARABINE PHOSPHATE [Suspect]
     Route: 048
     Dates: start: 20080611, end: 20080615
  3. FLUDARABINE PHOSPHATE [Suspect]
     Route: 048
     Dates: start: 20080709, end: 20080713
  4. FLUDARABINE PHOSPHATE [Suspect]
     Route: 048
     Dates: start: 20080808, end: 20080812
  5. FLUDARABINE PHOSPHATE [Suspect]
     Route: 042
     Dates: start: 20080313, end: 20080319
  6. FLUDARABINE PHOSPHATE [Suspect]
     Route: 042
     Dates: start: 20080409, end: 20080413
  7. CYCLOPHOSPHAMIDE [Concomitant]
     Indication: NON-HODGKIN'S LYMPHOMA
     Route: 042
     Dates: start: 20080313, end: 20080317
  8. CYCLOPHOSPHAMIDE [Concomitant]
     Route: 042
     Dates: start: 20080409, end: 20080413
  9. CYCLOPHOSPHAMIDE [Concomitant]
     Route: 042
     Dates: start: 20080507, end: 20080511
  10. CYCLOPHOSPHAMIDE [Concomitant]
     Route: 042
     Dates: start: 20080709, end: 20080713
  11. CYCLOPHOSPHAMIDE [Concomitant]
     Route: 042
     Dates: start: 20080808, end: 20080812
  12. ENAP [Concomitant]
     Route: 048
     Dates: start: 20080313
  13. LASOLVAN [Concomitant]
     Indication: COUGH
     Route: 065
     Dates: start: 20080524, end: 20080606
  14. CIPROFLOXACIN [Concomitant]
     Indication: BRONCHITIS
     Route: 065
     Dates: start: 20080526, end: 20080609

REACTIONS (7)
  - ANAEMIA [None]
  - DERMATITIS ALLERGIC [None]
  - MUCOSAL HAEMORRHAGE [None]
  - OPPORTUNISTIC INFECTION [None]
  - PETECHIAE [None]
  - PNEUMONIA [None]
  - RENAL HAEMORRHAGE [None]
